FAERS Safety Report 4824267-0 (Version None)
Quarter: 2005Q4

REPORT INFORMATION
  Report Type: 
  Country: None (occurrence: None)
  Receive Date: 20051108
  Receipt Date: 20051028
  Transmission Date: 20060501
  Serious: Yes (Hospitalization, Other)
  Sender: FDA-Public Use
  Company Number: US_0510122982

PATIENT
  Age: 49 Year
  Sex: Male
  Weight: 86 kg

DRUGS (2)
  1. ZYPREXA [Suspect]
     Dosage: 10 MG
     Dates: start: 20020117
  2. WELLBUTRIN [Concomitant]

REACTIONS (5)
  - BLOOD CHOLESTEROL INCREASED [None]
  - BLOOD TRIGLYCERIDES INCREASED [None]
  - CORONARY ARTERY OCCLUSION [None]
  - DIABETES MELLITUS [None]
  - VASCULAR BYPASS GRAFT [None]
